FAERS Safety Report 7646044-8 (Version None)
Quarter: 2011Q3

REPORT INFORMATION
  Report Type: 
  Country: None (occurrence: None)
  Receive Date: 20110801
  Receipt Date: 20110722
  Transmission Date: 20111222
  Serious: Yes (Hospitalization, Other)
  Sender: FDA-Public Use
  Company Number: FR-BIOGENIDEC-2011BI014461

PATIENT
  Age: 31 Year
  Sex: Female
  Weight: 61 kg

DRUGS (8)
  1. BETAMETHASONE [Concomitant]
     Indication: PHARYNGITIS
     Route: 048
     Dates: start: 20110105
  2. ALFUZOSINE [Concomitant]
     Indication: HYPERTONIC BLADDER
     Route: 048
     Dates: start: 20110107
  3. CLONAZEPAM [Concomitant]
     Indication: PAIN IN EXTREMITY
     Route: 048
     Dates: start: 20110101
  4. METHYLPREDNISOLONE [Concomitant]
     Indication: MULTIPLE SCLEROSIS RELAPSE
     Route: 042
     Dates: start: 20110114, end: 20110116
  5. TYSABRI [Suspect]
     Indication: MULTIPLE SCLEROSIS
     Route: 042
     Dates: start: 20081010, end: 20110107
  6. BOTULINUM TOXIN [Concomitant]
     Indication: MUSCLE RELAXANT THERAPY
     Dates: start: 20100901
  7. TYSABRI [Suspect]
     Route: 042
     Dates: start: 20110214
  8. CEFTRIAXONE [Concomitant]
     Indication: SINUSITIS
     Dates: start: 20110105

REACTIONS (1)
  - PSEUDOMEMBRANOUS COLITIS [None]
